FAERS Safety Report 4927568-0 (Version None)
Quarter: 2006Q1

REPORT INFORMATION
  Report Type: 
  Country: None (occurrence: None)
  Receive Date: 20060228
  Receipt Date: 20060127
  Transmission Date: 20060701
  Serious: Yes (Life-Threatening, Hospitalization)
  Sender: FDA-Public Use
  Company Number: JP-ROCHE-433774

PATIENT
  Age: 79 Year
  Sex: Male

DRUGS (2)
  1. HORIZON [Suspect]
     Indication: CONVULSION PROPHYLAXIS
     Dosage: ROUTE REPORTED AS DR.
     Route: 041
     Dates: start: 20051106, end: 20051201
  2. LEPETAN [Suspect]
     Indication: CONVULSION PROPHYLAXIS
     Dosage: ROUTE REPORTED AS DR.
     Route: 050
     Dates: start: 20051104, end: 20051201

REACTIONS (8)
  - CARDIAC ARREST [None]
  - CEREBRAL ATROPHY [None]
  - CEREBRAL INFARCTION [None]
  - DEPRESSED LEVEL OF CONSCIOUSNESS [None]
  - INJURY ASPHYXIATION [None]
  - NEURODEGENERATIVE DISORDER [None]
  - TETANUS [None]
  - VOMITING [None]
